FAERS Safety Report 9751540 (Version 1)
Quarter: 2013Q4

REPORT INFORMATION
  Report Type: Spontaneous
  Country: US (occurrence: US)
  Receive Date: 20131212
  Receipt Date: 20131212
  Transmission Date: 20140711
  Serious: Yes (Death, Other)
  Sender: FDA-Public Use
  Company Number: US-NAPPMUNDI-USA-2013-0102564

PATIENT
  Sex: Male

DRUGS (3)
  1. DILAUDID TABLET [Suspect]
     Indication: PAIN
     Dosage: 8 MG, SINGLE
     Route: 048
  2. DILAUDID INJECTION [Suspect]
     Indication: PAIN
     Dosage: 2 MG, AM
     Route: 042
  3. DILAUDID INJECTION [Suspect]
     Dosage: 1 MG, SINGLE
     Route: 042

REACTIONS (3)
  - Overdose [Fatal]
  - Substance abuse [Unknown]
  - Pain [Unknown]
